FAERS Safety Report 6405255-X (Version None)
Quarter: 2009Q4

REPORT INFORMATION
  Report Type: 
  Country: None (occurrence: None)
  Receive Date: 20091014
  Receipt Date: 20090930
  Transmission Date: 20100525
  Serious: Yes (Death, Hospitalization)
  Sender: FDA-Public Use
  Company Number: 2009AC000093

PATIENT
  Age: 64 Year
  Sex: Female

DRUGS (34)
  1. DIGOXIN [Suspect]
     Dosage: 0.125 MG;QD;PO
     Route: 048
     Dates: start: 20050101
  2. MONOPRIL [Concomitant]
  3. HYDROXYUREA [Concomitant]
  4. COUMADIN [Concomitant]
  5. FOSINOPRIL SODIUM [Concomitant]
  6. SPORANOX [Concomitant]
  7. FUROSEMIDE [Concomitant]
  8. GLYBURIDE [Concomitant]
  9. ASCENSIA [Concomitant]
  10. ISOSORBIDE [Concomitant]
  11. ACETAMINOPHEN [Concomitant]
  12. SPIRONOLACTONE [Concomitant]
  13. COREG [Concomitant]
  14. FOSAMAX [Concomitant]
  15. NITROGLYCERIN [Concomitant]
  16. PRINIVIL [Concomitant]
  17. SIMVASTATIN [Concomitant]
  18. CARVEDILOL [Concomitant]
  19. NEXIUM [Concomitant]
  20. FLONASE [Concomitant]
  21. CALCIUM [Concomitant]
  22. NITROGLYCERIN [Concomitant]
  23. SIMETHICONE [Concomitant]
  24. TYLENOL [Concomitant]
  25. PHENERGAN HCL [Concomitant]
  26. IBUPROFEN [Concomitant]
  27. CHLORPHENIRAMINE MALEATE [Concomitant]
  28. ALPRAZOLAM [Concomitant]
  29. LOPERAMIDE [Concomitant]
  30. FLUTICASONE PROPIONATE [Concomitant]
  31. NOVOLIN [Concomitant]
  32. PREMARIN [Concomitant]
  33. ITRACONAZOLE [Concomitant]
  34. HYDOX-UREA [Concomitant]

REACTIONS (26)
  - ASTHENIA [None]
  - ATAXIA [None]
  - ATRIAL FIBRILLATION [None]
  - BLOOD CALCIUM DECREASED [None]
  - BRADYCARDIA [None]
  - CONFUSIONAL STATE [None]
  - CORONARY ARTERY DISEASE [None]
  - DILATATION ATRIAL [None]
  - DISORIENTATION [None]
  - EATING DISORDER [None]
  - ECONOMIC PROBLEM [None]
  - EJECTION FRACTION DECREASED [None]
  - ELECTROCARDIOGRAM ST-T CHANGE [None]
  - FLATULENCE [None]
  - FLUID INTAKE REDUCED [None]
  - FLUID OVERLOAD [None]
  - GASTROENTERITIS [None]
  - HIATUS HERNIA [None]
  - HYPERTENSION [None]
  - HYPOGLYCAEMIA [None]
  - HYPOTENSION [None]
  - MITRAL VALVE STENOSIS [None]
  - MULTIPLE INJURIES [None]
  - PULMONARY VALVE INCOMPETENCE [None]
  - ROAD TRAFFIC ACCIDENT [None]
  - THERAPEUTIC AGENT TOXICITY [None]
